FAERS Safety Report 9952858 (Version 1)
Quarter: 2014Q1

REPORT INFORMATION
  Report Type: Spontaneous
  Country: US (occurrence: US)
  Receive Date: 20140304
  Receipt Date: 20140304
  Transmission Date: 20141002
  Serious: No
  Sender: FDA-Public Use
  Company Number: US-AMGEN-USASP2014000955

PATIENT
  Age: 63 Year
  Sex: Female
  Weight: 106.58 kg

DRUGS (4)
  1. ENBREL [Suspect]
     Indication: RHEUMATOID ARTHRITIS
     Dosage: 50 MG, QWK
     Route: 058
     Dates: start: 2011
  2. SIMVASTATIN [Concomitant]
     Dosage: UNK
  3. OMEPRAZOLE [Concomitant]
     Dosage: UNK
  4. TRIAMTERENE/HCTZ [Concomitant]
     Dosage: UNK

REACTIONS (2)
  - Eye infection [Recovered/Resolved]
  - Influenza [Not Recovered/Not Resolved]
